FAERS Safety Report 6956578-7 (Version None)
Quarter: 2010Q3

REPORT INFORMATION
  Report Type: 
  Country: None (occurrence: None)
  Receive Date: 20100830
  Receipt Date: 20100816
  Transmission Date: 20110219
  Serious: Yes (Hospitalization)
  Sender: FDA-Public Use
  Company Number: TR-MYLANLABS-2010S1014860

PATIENT
  Age: 50 Year
  Sex: Male

DRUGS (2)
  1. SERTRALINE HYDROCHLORIDE [Suspect]
     Indication: DEPRESSION
     Route: 065
  2. CITALOPRAM [Interacting]
     Indication: DEPRESSION
     Route: 065

REACTIONS (2)
  - DRUG INTERACTION [None]
  - SINUS ARREST [None]
